FAERS Safety Report 15948949 (Version 1)
Quarter: 2019Q1

REPORT INFORMATION
  Report Type: Spontaneous
  Country: FR (occurrence: FR)
  Receive Date: 20190212
  Receipt Date: 20190212
  Transmission Date: 20190417
  Serious: Yes (Death)
  Sender: FDA-Public Use
  Company Number: FR-ACCORD-106655

PATIENT
  Age: 62 Year
  Sex: Male
  Weight: 72 kg

DRUGS (13)
  1. DOCETAXEL. [Suspect]
     Active Substance: DOCETAXEL
     Indication: LUNG NEOPLASM MALIGNANT
     Route: 041
     Dates: start: 20180430, end: 20180430
  2. DIFFU K, [Suspect]
     Active Substance: POTASSIUM CHLORIDE
     Indication: PRODUCT USED FOR UNKNOWN INDICATION
     Route: 048
     Dates: start: 20180503, end: 20180508
  3. BETAHISTINE [Concomitant]
     Active Substance: BETAHISTINE
  4. FOLATE SODIUM/FOLIC ACID [Concomitant]
  5. CORTANCYL [Suspect]
     Active Substance: PREDNISONE
     Indication: LUNG NEOPLASM MALIGNANT
     Dosage: STRENGTH : 20 MG
     Route: 048
     Dates: start: 20180427, end: 20180510
  6. AKINETON [Concomitant]
     Active Substance: BIPERIDEN HYDROCHLORIDE
  7. LORAZEPAM. [Concomitant]
     Active Substance: LORAZEPAM
  8. SULFARLEM [Concomitant]
     Active Substance: ANETHOLTRITHION
  9. TERALITHE [Concomitant]
     Active Substance: LITHIUM CARBONATE
     Dosage: STRENGTH : 400 MG, BREAKABLE SUSTAINED RELEASE TABLET
  10. CETIRIZINE/CETIRIZINE HYDROCHLORIDE [Concomitant]
  11. CISPLATIN. [Suspect]
     Active Substance: CISPLATIN
     Indication: LUNG NEOPLASM MALIGNANT
     Route: 041
     Dates: start: 20180430, end: 20180430
  12. LARGACTIL [Concomitant]
     Active Substance: CHLORPROMAZINE
     Dosage: STRENGTH : 100 MG, SCORED FILM-COATED TABLET
  13. LANSOPRAZOLE. [Concomitant]
     Active Substance: LANSOPRAZOLE

REACTIONS (4)
  - Hyperkalaemia [Fatal]
  - Septic shock [Fatal]
  - Renal failure [Fatal]
  - Intestinal obstruction [Fatal]

NARRATIVE: CASE EVENT DATE: 20180508
